FAERS Safety Report 15026948 (Version 1)
Quarter: 2018Q2

REPORT INFORMATION
  Report Type: Spontaneous
  Country: DE (occurrence: DE)
  Receive Date: 20180619
  Receipt Date: 20180619
  Transmission Date: 20180711
  Serious: Yes (Hospitalization)
  Sender: FDA-Public Use
  Company Number: DE-TEVA-2018-DE-908442

PATIENT
  Age: 64 Year
  Sex: Female
  Weight: 61 kg

DRUGS (12)
  1. PANTOPRAZOLE [Suspect]
     Active Substance: PANTOPRAZOLE
     Dosage: 40 MG, 1-0-1, TABLETTEN
     Route: 048
  2. ASS PROTECT 100 [Suspect]
     Active Substance: ASPIRIN
     Dosage: 100 MG, 1-0-0, TABLETTEN
     Route: 048
  3. MARCUMAR [Suspect]
     Active Substance: PHENPROCOUMON
     Dosage: NACH RR MESSUNG, TABLETTEN
     Route: 048
  4. LOPERAMIDE [Concomitant]
     Active Substance: LOPERAMIDE
     Dosage: 2 MG, 2-2-0-2, SCHMELZTABLETTEN
     Route: 048
  5. TORASEMIDE [Suspect]
     Active Substance: TORSEMIDE
     Dosage: 10 MG, 1-0-0, TABLETTEN
     Route: 048
  6. ZOLPIDEM [Suspect]
     Active Substance: ZOLPIDEM\ZOLPIDEM TARTRATE
     Dosage: 10 MG, 0-0-0-1/2 B.B., TABLETTEN
     Route: 048
  7. BISOPROLOL [Suspect]
     Active Substance: BISOPROLOL
     Dosage: 2.5 MG, 1-0-1, TABLETTEN
     Route: 048
  8. MAGNESIUM [Concomitant]
     Active Substance: MAGNESIUM
     Dosage: 300 MG, 1-1-1, GRANULAT
     Route: 048
  9. AMLODIPINE [Suspect]
     Active Substance: AMLODIPINE BESYLATE
     Dosage: 2.5 MG, 1-0-0, TABLETTEN
     Route: 048
  10. TINCTURA OPII [Concomitant]
     Dosage: 7-7-7, DROPS
     Route: 048
  11. ATORVASTATIN [Suspect]
     Active Substance: ATORVASTATIN
     Dosage: 10 MG, 0-0-1, TABLETTEN
     Route: 048
  12. APLONA [Concomitant]
     Dosage: 1-1-1, POWDER
     Route: 048

REACTIONS (1)
  - Hepatic enzyme increased [Unknown]

NARRATIVE: CASE EVENT DATE: 20170116
